FAERS Safety Report 12203848 (Version 1)
Quarter: 2016Q1

REPORT INFORMATION
  Report Type: Spontaneous
  Country: IN (occurrence: IN)
  Receive Date: 20160323
  Receipt Date: 20160323
  Transmission Date: 20160526
  Serious: Yes (Death, Other)
  Sender: FDA-Public Use
  Company Number: IN-CELGENE-078-21660-14080836

PATIENT

DRUGS (1)
  1. ABRAXANE [Suspect]
     Active Substance: PACLITAXEL
     Indication: BREAST CANCER METASTATIC
     Dosage: 111.4286 MILLIGRAM/SQ. METER
     Route: 050

REACTIONS (22)
  - Neutropenia [Unknown]
  - Febrile neutropenia [Unknown]
  - Asthenia [Unknown]
  - Diarrhoea [Unknown]
  - Toxicity to various agents [Unknown]
  - Cardiac arrest [Unknown]
  - Thrombocytopenia [Unknown]
  - Pyrexia [Unknown]
  - Nausea [Unknown]
  - Alopecia [Unknown]
  - Vomiting [Unknown]
  - Pruritus [Unknown]
  - Leukopenia [Unknown]
  - Mucosal inflammation [Unknown]
  - Decreased appetite [Unknown]
  - Anaemia [Unknown]
  - Pain [Unknown]
  - Death [Fatal]
  - Infection [Unknown]
  - Cough [Unknown]
  - Neuropathy peripheral [Unknown]
  - Disease progression [Unknown]
